FAERS Safety Report 8954377 (Version 1)
Quarter: 2012Q4

REPORT INFORMATION
  Report Type: 
  Country: NL (occurrence: NL)
  Receive Date: 20121210
  Receipt Date: 20121210
  Transmission Date: 20130627
  Serious: Yes (Other)
  Sender: FDA-Public Use
  Company Number: NL-AMGEN-NLDSP2012078743

PATIENT
  Age: 56 Year
  Sex: Female

DRUGS (5)
  1. ENBREL [Suspect]
     Indication: RHEUMATOID ARTHRITIS
     Dosage: 50 mg, weekly
     Dates: start: 2012
  2. ENBREL [Suspect]
     Dosage: 50 mg, 1x/ 10day
  3. ENBREL [Suspect]
     Dosage: 50 mg, 1x/ 14 days
     Dates: start: 201209
  4. MTX                                /00113801/ [Concomitant]
     Dosage: UNK
  5. MOVICOX [Concomitant]
     Dosage: UNK

REACTIONS (4)
  - Arthralgia [Unknown]
  - Pain in extremity [Unknown]
  - Neck pain [Unknown]
  - Pneumonia [Recovered/Resolved]
